FAERS Safety Report 5762098-8 (Version None)
Quarter: 2008Q2

REPORT INFORMATION
  Report Type: 
  Country: None (occurrence: None)
  Receive Date: 20080604
  Receipt Date: 20080520
  Transmission Date: 20081010
  Serious: Yes (Other)
  Sender: FDA-Public Use
  Company Number: S08-FRA-01268-01

PATIENT
  Age: 52 Year
  Sex: Female

DRUGS (3)
  1. ESCITALOPRAM [Suspect]
     Indication: DEPRESSION
     Dosage: 20 MG QD PO
     Route: 048
     Dates: start: 20080101, end: 20080321
  2. MEPRONIZINE [Concomitant]
  3. PROPRANOLOL [Concomitant]

REACTIONS (1)
  - HEPATIC STEATOSIS [None]
